FAERS Safety Report 4766479-0 (Version None)
Quarter: 2005Q3

REPORT INFORMATION
  Report Type: 
  Country: None (occurrence: None)
  Receive Date: 20050912
  Receipt Date: 20050901
  Transmission Date: 20060218
  Serious: Yes (Death, Hospitalization)
  Sender: FDA-Public Use
  Company Number: JP-JNJFOC-20050300005

PATIENT
  Age: 78 Year
  Sex: Female

DRUGS (3)
  1. TAVANIC [Suspect]
     Indication: PNEUMONIA
     Route: 048
     Dates: start: 20041224, end: 20050110
  2. CEFTRIAXONE [Suspect]
     Indication: DRUG USE FOR UNKNOWN INDICATION
     Route: 042
     Dates: start: 20041226, end: 20050110
  3. LOVENOX [Concomitant]
     Indication: DRUG USE FOR UNKNOWN INDICATION
     Route: 058
     Dates: start: 20041227, end: 20050110

REACTIONS (6)
  - ALLERGY TEST POSITIVE [None]
  - ARTERIOVENOUS FISTULA THROMBOSIS [None]
  - DEMENTIA [None]
  - HAEMORRHAGE [None]
  - THROMBOCYTOPENIA [None]
  - THROMBOSIS [None]
